FAERS Safety Report 5955565-5 (Version None)
Quarter: 2008Q4

REPORT INFORMATION
  Report Type: 
  Country: None (occurrence: None)
  Receive Date: 20081117
  Receipt Date: 20081106
  Transmission Date: 20090506
  Serious: Yes (Other)
  Sender: FDA-Public Use
  Company Number: US-PFIZER INC-2008078900

PATIENT
  Sex: Female
  Weight: 61.2 kg

DRUGS (9)
  1. CHANTIX [Suspect]
     Dates: start: 20080617
  2. VITAMINS [Concomitant]
  3. DRUG, UNSPECIFIED [Concomitant]
  4. PRINZIDE [Concomitant]
     Indication: HYPERTENSION
  5. LOVASTATIN [Concomitant]
     Indication: BLOOD CHOLESTEROL
  6. XANAX [Concomitant]
  7. TYLENOL (CAPLET) [Concomitant]
  8. IBUPROFEN TABLETS [Concomitant]
  9. XALATAN [Concomitant]

REACTIONS (4)
  - CATARACT [None]
  - INTENTIONAL DRUG MISUSE [None]
  - NAUSEA [None]
  - PRURITUS [None]
